FAERS Safety Report 8819732 (Version 1)
Quarter: 2012Q4

REPORT INFORMATION
  Report Type: 
  Country: DE (occurrence: DE)
  Receive Date: 20121001
  Receipt Date: 20121001
  Transmission Date: 20130627
  Serious: Yes (Hospitalization)
  Sender: FDA-Public Use
  Company Number: DE-VALEANT-2012VX004439

PATIENT
  Sex: Female

DRUGS (1)
  1. MESTINON [Suspect]
     Indication: MYASTHENIA
     Route: 065

REACTIONS (1)
  - Breast enlargement [Not Recovered/Not Resolved]
